FAERS Safety Report 9869892 (Version 2)
Quarter: 2014Q2

REPORT INFORMATION
  Report Type: Spontaneous
  Country: GB (occurrence: None)
  Receive Date: 20140131
  Receipt Date: 20140425
  Transmission Date: 20141212
  Serious: Yes (Other)
  Sender: FDA-Public Use
  Company Number: AUR-APL-2014-00786

PATIENT
  Age: 85 Year
  Sex: Male
  Weight: 69.09 kg

DRUGS (8)
  1. TERBINAFINE (TERBINAFINE) [Suspect]
     Indication: PRODUCT USED FOR UNKNOWN INDICATION
     Dates: start: 20131220
  2. WARFARIN (WARFARIN) [Suspect]
     Indication: PRODUCT USED FOR UNKNOWN INDICATION
     Dates: start: 20131011
  3. ADCAL (CARBAZOCHROME) [Concomitant]
  4. ALENDRONIC ACID (ALENDRONIC ACID) [Concomitant]
  5. AMOROLFINE [Concomitant]
  6. CETIRIZINE [Concomitant]
  7. MOMETASONE [Concomitant]
  8. VERAPAMIL HYDROCHLORIDE [Concomitant]

REACTIONS (3)
  - Malaise [None]
  - International normalised ratio decreased [None]
  - Medication error [None]
